FAERS Safety Report 5701768-4 (Version None)
Quarter: 2008Q2

REPORT INFORMATION
  Report Type: 
  Country: None (occurrence: None)
  Receive Date: 20080410
  Receipt Date: 20080410
  Transmission Date: 20081010
  Serious: Yes (Death)
  Sender: FDA-Public Use
  Company Number: None

PATIENT
  Age: 74 Year
  Sex: Male
  Weight: 71.2147 kg

DRUGS (5)
  1. SINGULAIR [Suspect]
     Indication: MULTIPLE ALLERGIES
     Dosage: 1 TABLET DAILY
     Dates: start: 20040101, end: 20070101
  2. ALLEGRA [Concomitant]
  3. LEXAPRO [Concomitant]
  4. CARDURA [Concomitant]
  5. ARICEPT [Concomitant]

REACTIONS (2)
  - GUN SHOT WOUND [None]
  - INJURY [None]
